FAERS Safety Report 7701485-5 (Version None)
Quarter: 2011Q3

REPORT INFORMATION
  Report Type: 
  Country: None (occurrence: None)
  Receive Date: 20110819
  Receipt Date: 20110819
  Transmission Date: 20111222
  Serious: Yes (Hospitalization)
  Sender: FDA-Public Use
  Company Number: None

PATIENT
  Sex: Female
  Weight: 98 kg

DRUGS (2)
  1. CISPLATIN [Suspect]
     Dosage: 100 MG
  2. PEMETREXED [Suspect]
     Dosage: 1000 MG

REACTIONS (14)
  - NEOPLASM RECURRENCE [None]
  - URINARY TRACT INFECTION PSEUDOMONAL [None]
  - BLOOD GLUCOSE INCREASED [None]
  - BLOOD SODIUM DECREASED [None]
  - BLOOD ALBUMIN DECREASED [None]
  - WHITE BLOOD CELL COUNT DECREASED [None]
  - KLEBSIELLA SEPSIS [None]
  - BLOOD CHLORIDE DECREASED [None]
  - HYPOCALCAEMIA [None]
  - URINARY TRACT INFECTION ENTEROCOCCAL [None]
  - BLOOD POTASSIUM DECREASED [None]
  - NEUTROPENIA [None]
  - SQUAMOUS CELL CARCINOMA OF THE CERVIX [None]
  - ANAEMIA [None]
